FAERS Safety Report 10914964 (Version 13)
Quarter: 2021Q4

REPORT INFORMATION
  Report Type: Spontaneous
  Country: GB (occurrence: GB)
  Receive Date: 20150314
  Receipt Date: 20211130
  Transmission Date: 20220304
  Serious: Yes (Life-Threatening, Hospitalization, Congenital Anomaly, Other)
  Sender: FDA-Public Use
  Company Number: None

PATIENT
  Age: 18 Month
  Sex: Female
  Weight: 2.267 kg

DRUGS (22)
  1. ACETAMINOPHEN AND CODEINE [Suspect]
     Active Substance: ACETAMINOPHEN\CODEINE PHOSPHATE
     Indication: Pelvic pain
     Dosage: UP TO FOUR TIMES A DAY. 4X/DAY (QID)
     Route: 064
  2. ACETAMINOPHEN AND CODEINE [Suspect]
     Active Substance: ACETAMINOPHEN\CODEINE PHOSPHATE
     Indication: Back disorder
     Route: 064
  3. ACETAMINOPHEN AND CODEINE [Suspect]
     Active Substance: ACETAMINOPHEN\CODEINE PHOSPHATE
     Indication: Foetal exposure during pregnancy
  4. COCODAMOL [Suspect]
     Active Substance: ACETAMINOPHEN\CODEINE PHOSPHATE
     Indication: Foetal exposure during pregnancy
     Dosage: ABUSE,OVERDOSE
     Route: 064
  5. COCODAMOL [Suspect]
     Active Substance: ACETAMINOPHEN\CODEINE PHOSPHATE
     Indication: Pelvic pain
     Dosage: 4 OT QD
     Route: 064
  6. COCODAMOL [Suspect]
     Active Substance: ACETAMINOPHEN\CODEINE PHOSPHATE
     Indication: Back disorder
     Dosage: STAGGERED PARACETAMOL OVERDOSE(UNINTENTIONAL) OVER WEEKS AND DAYS PRIOR TO DELIVERY
     Route: 064
  7. COCODAMOL [Suspect]
     Active Substance: ACETAMINOPHEN\CODEINE PHOSPHATE
     Dosage: MATERNAL DOSE: UNK
     Route: 064
  8. COCODAMOL [Suspect]
     Active Substance: ACETAMINOPHEN\CODEINE PHOSPHATE
     Route: 064
  9. PERFALGAN [Suspect]
     Active Substance: ACETAMINOPHEN
     Indication: Back disorder
     Dosage: UP TO FOUR TIMES A DAY, PARENT: INDICATION: BACK DISORDER
     Route: 064
  10. PERFALGAN [Suspect]
     Active Substance: ACETAMINOPHEN
     Indication: Pelvic pain
     Dosage: PARENT: INDICATION: PELVIC PAIN
     Route: 064
  11. PERFALGAN [Suspect]
     Active Substance: ACETAMINOPHEN
     Indication: Foetal exposure during pregnancy
     Dosage: STAGGERED PARACETAMOL OVERDOSE(UNINTENTIONAL) OVER WEEKS AND DAYS PRIOR TO DELIVERY
     Route: 064
  12. PERFALGAN [Suspect]
     Active Substance: ACETAMINOPHEN
     Indication: Pyelonephritis
     Dosage: UNK, 4X/DAY (QID)
     Route: 064
  13. CODEINE [Suspect]
     Active Substance: CODEINE
     Indication: Pelvic pain
     Dosage: 4 OT, QD
     Route: 064
  14. CODEINE [Suspect]
     Active Substance: CODEINE
     Indication: Back disorder
     Route: 064
  15. CODEINE [Suspect]
     Active Substance: CODEINE
     Indication: Foetal exposure during pregnancy
     Route: 064
  16. MORPHINE HYDROCHLORIDE [Concomitant]
     Active Substance: MORPHINE HYDROCHLORIDE
     Indication: Product used for unknown indication
     Route: 064
  17. METRONIDAZOLE [Concomitant]
     Active Substance: METRONIDAZOLE
     Indication: Pyelonephritis
     Route: 064
  18. FLUOXETINE [Concomitant]
     Active Substance: FLUOXETINE HYDROCHLORIDE
     Indication: Product used for unknown indication
     Route: 064
  19. FLUOXETINE [Concomitant]
     Active Substance: FLUOXETINE HYDROCHLORIDE
     Indication: Foetal exposure during pregnancy
  20. CEPHRADINE [Concomitant]
     Active Substance: CEPHRADINE
     Indication: Pyelonephritis
     Route: 064
  21. ENOXAPARIN [Concomitant]
     Active Substance: ENOXAPARIN
     Indication: Product used for unknown indication
     Route: 064
  22. ENOXAPARIN [Concomitant]
     Active Substance: ENOXAPARIN
     Indication: Foetal exposure during pregnancy

REACTIONS (29)
  - Developmental delay [Not Recovered/Not Resolved]
  - Foetal exposure during pregnancy [Unknown]
  - Foetal arrhythmia [Recovered/Resolved]
  - Premature baby [Unknown]
  - Language disorder [Unknown]
  - Incubator therapy [Unknown]
  - Tremor [Unknown]
  - Hepatic function abnormal [Unknown]
  - Malaise [Unknown]
  - Overdose [Unknown]
  - Dependence [Unknown]
  - Tremor [Unknown]
  - Malaise [Unknown]
  - Aphasia [Unknown]
  - Foetal monitoring abnormal [Unknown]
  - Heart rate irregular [Unknown]
  - Gait inability [Unknown]
  - Gait inability [Unknown]
  - Respiratory distress [Recovered/Resolved]
  - Foetal arrhythmia [Recovered/Resolved]
  - Jaundice neonatal [Recovered/Resolved]
  - Hepatotoxicity [Recovered/Resolved]
  - Dependence [Recovered/Resolved]
  - Liver function test abnormal [Recovered/Resolved]
  - Drug withdrawal syndrome neonatal [Recovered/Resolved]
  - Incorrect product administration duration [Unknown]
  - Jaundice neonatal [Recovered/Resolved]
  - Gingival discomfort [Unknown]
  - Low birth weight baby [Unknown]
